FAERS Safety Report 15192655 (Version 2)
Quarter: 2018Q4

REPORT INFORMATION
  Report Type: Spontaneous
  Country: US (occurrence: US)
  Receive Date: 20180725
  Receipt Date: 20181017
  Transmission Date: 20190204
  Serious: No
  Sender: FDA-Public Use
  Company Number: US-BAUSCH-BL-2018-019397

PATIENT
  Age: 57 Year
  Sex: Female
  Weight: 52.21 kg

DRUGS (1)
  1. BESIVANCE [Suspect]
     Active Substance: BESIFLOXACIN
     Indication: CONJUNCTIVITIS
     Dosage: THREE DROPS DAILY IN LEFT EYE
     Route: 031
     Dates: start: 20180711

REACTIONS (2)
  - Product physical consistency issue [Not Recovered/Not Resolved]
  - Vision blurred [Unknown]

NARRATIVE: CASE EVENT DATE: 20180711
